FAERS Safety Report 11786383 (Version 2)
Quarter: 2015Q4

REPORT INFORMATION
  Report Type: Spontaneous
  Country: BR (occurrence: BR)
  Receive Date: 20151130
  Receipt Date: 20151214
  Transmission Date: 20160305
  Serious: Yes (Other)
  Sender: FDA-Public Use
  Company Number: BR-VALIDUS PHARMACEUTICALS LLC-BR-2015VAL000783

PATIENT

DRUGS (1)
  1. PARLODEL [Suspect]
     Active Substance: BROMOCRIPTINE MESYLATE
     Indication: PROLACTINOMA
     Dosage: 1 DF, BID (ONE TABLET IN THE MORNING AND ONE TABLET AT NIGHT)
     Route: 048
     Dates: end: 2015

REACTIONS (8)
  - Headache [Not Recovered/Not Resolved]
  - Syncope [Not Recovered/Not Resolved]
  - Neoplasm [Unknown]
  - Head discomfort [Not Recovered/Not Resolved]
  - Gaze palsy [Not Recovered/Not Resolved]
  - Stag horn calculus [Recovering/Resolving]
  - Renal injury [Recovering/Resolving]
  - Fall [Unknown]

NARRATIVE: CASE EVENT DATE: 20151113
